FAERS Safety Report 8247241-3 (Version None)
Quarter: 2012Q1

REPORT INFORMATION
  Report Type: 
  Country: None (occurrence: None)
  Receive Date: 20120330
  Receipt Date: 20120319
  Transmission Date: 20120608
  Serious: Yes (Hospitalization)
  Sender: FDA-Public Use
  Company Number: JP-SANOFI-AVENTIS-2012SA008136

PATIENT
  Age: 34 Year
  Sex: Female
  Weight: 63 kg

DRUGS (6)
  1. SOLOSTAR [Suspect]
     Indication: DEVICE THERAPY
     Dates: start: 20100127, end: 20100310
  2. SOLOSTAR [Suspect]
     Dates: start: 20100310
  3. INSULIN HUMAN [Concomitant]
     Dosage: DAILY DOSE: 17 TIMES
     Route: 058
     Dates: start: 20100310
  4. LANTUS [Suspect]
     Indication: TYPE 1 DIABETES MELLITUS
     Dosage: DAILY DOSE: 18X1 TIMES
     Route: 058
     Dates: start: 20100127, end: 20100310
  5. LANTUS [Suspect]
     Dosage: DAILY DOSE: 14X1 TIMES
     Route: 058
     Dates: start: 20100310
  6. INSULIN HUMAN [Concomitant]
     Indication: DIABETES MELLITUS
     Dosage: DAILY DOSE: 29 TIMES
     Route: 058
     Dates: start: 20100127, end: 20100310

REACTIONS (6)
  - EPILEPSY [None]
  - FAECAL INCONTINENCE [None]
  - COMMUNICATION DISORDER [None]
  - HYPOGLYCAEMIA [None]
  - ANGER [None]
  - LOSS OF CONSCIOUSNESS [None]
